FAERS Safety Report 5581087-X (Version None)
Quarter: 2007Q4

REPORT INFORMATION
  Report Type: 
  Country: None (occurrence: None)
  Receive Date: 20071227
  Receipt Date: 20071220
  Transmission Date: 20080405
  Serious: Yes (Death, Other)
  Sender: FDA-Public Use
  Company Number: A-US2007-18732

PATIENT
  Age: 44 Year
  Sex: Female
  Weight: 61.2 kg

DRUGS (12)
  1. TRACLEER [Suspect]
     Indication: PULMONARY HYPERTENSION
     Dosage: ORAL
     Route: 048
     Dates: end: 20070101
  2. VENTAVIS [Suspect]
     Indication: PULMONARY HYPERTENSION
     Dosage: 5 UG, 6-9 X DAY, RESPIRATORY
     Route: 055
     Dates: start: 20060713, end: 20071109
  3. PREDNISONE [Concomitant]
  4. VIAGRA [Concomitant]
  5. NEXIUM [Concomitant]
  6. FUROSEMIDE [Concomitant]
  7. POTASSIUM CHLORIDE [Concomitant]
  8. METHOTREXATE [Concomitant]
  9. METOLAZONE [Concomitant]
  10. CELEBREX [Concomitant]
  11. HYDROCODONE BITARTRATE [Concomitant]
  12. REVATIO [Concomitant]

REACTIONS (6)
  - ABDOMINAL PAIN [None]
  - CHEST PAIN [None]
  - DIARRHOEA [None]
  - DISEASE PROGRESSION [None]
  - HEPATIC FIBROSIS [None]
  - PULMONARY HYPERTENSION [None]
